FAERS Safety Report 7772884 (Version 2)
Quarter: 2015Q2

REPORT INFORMATION
  Report Type: Spontaneous
  Country: GB (occurrence: None)
  Receive Date: 20101230
  Receipt Date: 20150410
  Transmission Date: 20150821
  Serious: Yes (Death)
  Sender: FDA-Public Use
  Company Number: UTC-003335

PATIENT
  Age: 74 Year

DRUGS (1)
  1. REMODULIN [Suspect]
     Active Substance: TREPROSTINIL
     Indication: PRODUCT USED FOR UNKNOWN INDICATION
     Dosage: INTRAVENOUS
     Route: 041
     Dates: start: 20050201, end: 20080601

REACTIONS (3)
  - Disease progression [None]
  - Death [None]
  - Pulmonary hypertension [None]
